FAERS Safety Report 20618378 (Version 1)
Quarter: 2022Q1

REPORT INFORMATION
  Report Type: Spontaneous
  Country: DE (occurrence: DE)
  Receive Date: 20220321
  Receipt Date: 20220321
  Transmission Date: 20220424
  Serious: Yes (Death, Life-Threatening, Hospitalization, Other)
  Sender: FDA-Public Use
  Company Number: DE-002147023-NVSC2020DE360798

PATIENT
  Age: 69 Year
  Sex: Female
  Weight: 71 kg

DRUGS (45)
  1. PREDNISOLONE [Suspect]
     Active Substance: PREDNISOLONE
     Indication: Product used for unknown indication
     Dosage: UNK
     Route: 065
  2. BISOPROLOL [Suspect]
     Active Substance: BISOPROLOL
     Indication: Product used for unknown indication
     Dosage: UNK
     Route: 065
     Dates: start: 2014, end: 2018
  3. BISOPROLOL [Suspect]
     Active Substance: BISOPROLOL
     Indication: Product used for unknown indication
     Dosage: 1/2 AN UNIT OF 10/25 QD
     Route: 065
     Dates: start: 200903
  4. AMLODIPINE BESYLATE [Suspect]
     Active Substance: AMLODIPINE BESYLATE
     Indication: Product used for unknown indication
     Dosage: 5 UNK
     Route: 065
     Dates: start: 201803
  5. AMLODIPINE BESYLATE [Suspect]
     Active Substance: AMLODIPINE BESYLATE
     Indication: Product used for unknown indication
     Dosage: 5 MG
     Route: 065
     Dates: start: 2013, end: 2018
  6. AMLODIPINE BESYLATE [Suspect]
     Active Substance: AMLODIPINE BESYLATE
     Dosage: 5 UNK
     Route: 065
     Dates: start: 2016, end: 2017
  7. AMLODIPINE BESYLATE [Suspect]
     Active Substance: AMLODIPINE BESYLATE
     Dosage: 5 MG, BID
     Route: 048
     Dates: start: 20180523, end: 20180612
  8. VALSARTAN [Suspect]
     Active Substance: VALSARTAN
     Indication: Product used for unknown indication
     Dosage: UNK UNK, BID
     Route: 065
     Dates: start: 2005
  9. VALSARTAN [Suspect]
     Active Substance: VALSARTAN
     Indication: Product used for unknown indication
     Dosage: 320 MG (1/2 A TABLET OF 320 MG), BID
     Route: 065
  10. VALSARTAN [Suspect]
     Active Substance: VALSARTAN
     Dosage: 1 UNK, QD (1X 160 MG)
     Route: 065
     Dates: start: 201005
  11. VALSARTAN [Suspect]
     Active Substance: VALSARTAN
     Dosage: 160 MG
     Route: 065
     Dates: start: 2017, end: 2018
  12. VALSARTAN [Suspect]
     Active Substance: VALSARTAN
     Dosage: UNK
     Route: 065
     Dates: start: 2013
  13. VALSARTAN [Suspect]
     Active Substance: VALSARTAN
     Dosage: 160 UNK
     Route: 065
     Dates: start: 2014
  14. VALSARTAN [Suspect]
     Active Substance: VALSARTAN
     Dosage: 160 MG
     Route: 065
     Dates: start: 201312, end: 2017
  15. DIOVAN [Suspect]
     Active Substance: VALSARTAN
     Indication: Product used for unknown indication
     Dosage: 80 UNK
     Route: 065
     Dates: start: 2011, end: 2013
  16. DIOVAN [Suspect]
     Active Substance: VALSARTAN
     Dosage: 1X 160, 2 DOSAGE FORM, QD
     Route: 065
     Dates: start: 201310
  17. DIOVAN [Suspect]
     Active Substance: VALSARTAN
     Dosage: 1X 80, QD
     Route: 065
     Dates: start: 201001, end: 201302
  18. DIOVAN [Suspect]
     Active Substance: VALSARTAN
     Dosage: 1 DOSAGE FORM, QD, 1/2 X 160 MG
     Route: 065
     Dates: start: 2013
  19. DIOVAN [Suspect]
     Active Substance: VALSARTAN
     Dosage: 1 DOSAGE FORM, QD (? X 160 )
     Route: 065
     Dates: start: 20130215, end: 201310
  20. DIOVAN [Suspect]
     Active Substance: VALSARTAN
     Dosage: 160 MG
     Route: 065
     Dates: start: 2013, end: 2013
  21. DIOVAN [Suspect]
     Active Substance: VALSARTAN
     Dosage: 1 DOSAGE FORM, QD (1X 160 MG)
     Route: 065
     Dates: start: 201302
  22. LEVOTHYROXINE SODIUM [Suspect]
     Active Substance: LEVOTHYROXINE SODIUM
     Indication: Product used for unknown indication
     Dosage: 125 UNK
     Route: 065
     Dates: start: 2016
  23. LEVOTHYROXINE SODIUM [Suspect]
     Active Substance: LEVOTHYROXINE SODIUM
     Indication: Product used for unknown indication
     Dosage: 125 UNK
     Route: 065
     Dates: start: 2014, end: 2018
  24. LEVOTHYROXINE SODIUM [Suspect]
     Active Substance: LEVOTHYROXINE SODIUM
     Dosage: 1.25 UNK, QD, 1.25 TABLETS OF 100 UG)
     Route: 065
     Dates: start: 20180524, end: 20180612
  25. FERROUS GLUCONATE [Concomitant]
     Active Substance: FERROUS GLUCONATE
     Indication: Product used for unknown indication
     Dosage: 1 DOSAGE FORM, QD
     Route: 065
  26. LEVOTHYROXINE SODIUM [Concomitant]
     Active Substance: LEVOTHYROXINE SODIUM
     Indication: Product used for unknown indication
     Dosage: 1 X 125, QD (MORNING)
     Route: 065
     Dates: start: 199003, end: 2018
  27. HYDROMORPHONE [Concomitant]
     Active Substance: HYDROMORPHONE
     Indication: Product used for unknown indication
     Dosage: 2 MG
     Route: 065
     Dates: start: 201902
  28. FUROSEMIDE [Concomitant]
     Active Substance: FUROSEMIDE
     Indication: Product used for unknown indication
     Dosage: 1 X 40 MG, 2 DOSAGE FORM, QD
     Route: 065
     Dates: start: 201903
  29. FENTANYL [Concomitant]
     Active Substance: FENTANYL
     Indication: Product used for unknown indication
     Dosage: 12 UG/H
     Route: 065
     Dates: start: 201903
  30. BISOPROLOL FUMARATE\HYDROCHLOROTHIAZIDE [Concomitant]
     Active Substance: BISOPROLOL FUMARATE\HYDROCHLOROTHIAZIDE
     Indication: Product used for unknown indication
     Dosage: 1/2 X 10/25, QD
     Route: 065
     Dates: end: 201302
  31. PANTOPRAZOLE [Concomitant]
     Active Substance: PANTOPRAZOLE
     Indication: Product used for unknown indication
     Dosage: 40 MG
     Route: 065
     Dates: start: 201901
  32. PANTOPRAZOLE [Concomitant]
     Active Substance: PANTOPRAZOLE
     Dosage: 1 DOSAGE FORM, QD (1X 40, MORNING)
     Route: 065
  33. HALOPERIDOL [Concomitant]
     Active Substance: HALOPERIDOL
     Indication: Product used for unknown indication
     Dosage: 30 ML
     Route: 065
     Dates: start: 201902
  34. EUTHYROX [Concomitant]
     Active Substance: LEVOTHYROXINE SODIUM
     Indication: Product used for unknown indication
     Dosage: 1X 125, QD
     Route: 065
  35. IBUPROFEN [Concomitant]
     Active Substance: IBUPROFEN
     Indication: Product used for unknown indication
     Dosage: UNK, BID, (MORNING AND EVENING)
     Route: 065
  36. MOMETASONE [Concomitant]
     Active Substance: MOMETASONE
     Indication: Product used for unknown indication
     Dosage: 1 MG/G
     Route: 065
  37. TAVOR [Concomitant]
     Indication: Product used for unknown indication
     Dosage: 1.0 UNK
     Route: 065
     Dates: start: 201902
  38. DIGITOXIN [Concomitant]
     Active Substance: DIGITOXIN
     Indication: Product used for unknown indication
     Dosage: 0.07 UNK
     Route: 065
     Dates: start: 201901
  39. ACETAMINOPHEN [Concomitant]
     Active Substance: ACETAMINOPHEN
     Indication: Product used for unknown indication
     Dosage: 1000 MG
     Route: 065
     Dates: start: 201903
  40. HYDROCHLOROTHIAZIDE [Concomitant]
     Active Substance: HYDROCHLOROTHIAZIDE
     Indication: Product used for unknown indication
     Dosage: 1/2 TABLET OF 25 MG QD
     Route: 048
     Dates: start: 20180524, end: 20180524
  41. POLYETHYLENE GLYCOLS [Concomitant]
     Active Substance: POLYETHYLENE GLYCOLS
     Indication: Product used for unknown indication
     Dosage: UNK
     Route: 065
     Dates: start: 201902
  42. MIDAZOLAM [Concomitant]
     Active Substance: MIDAZOLAM
     Indication: Product used for unknown indication
     Dosage: 5MG/1ML
     Route: 065
     Dates: start: 201903
  43. BISOPROLOL [Concomitant]
     Active Substance: BISOPROLOL
     Indication: Product used for unknown indication
     Dosage: 1X 5 MG, QD
     Route: 048
     Dates: start: 20180524
  44. BISOPROLOL [Concomitant]
     Active Substance: BISOPROLOL
     Route: 065
     Dates: start: 20180612
  45. VALSARTAN [Concomitant]
     Active Substance: VALSARTAN
     Indication: Product used for unknown indication
     Route: 065
     Dates: start: 201702

REACTIONS (84)
  - Death [Fatal]
  - Bradycardia [Unknown]
  - Nephrogenic anaemia [Unknown]
  - Aphasia [Recovering/Resolving]
  - Hypokalaemia [Unknown]
  - Cognitive disorder [Recovering/Resolving]
  - Myocardial ischaemia [Unknown]
  - Dizziness [Unknown]
  - Memory impairment [Recovering/Resolving]
  - Coordination abnormal [Recovering/Resolving]
  - Osteoarthritis [Recovered/Resolved]
  - Cataract [Unknown]
  - Cardiac failure [Unknown]
  - Urinary retention [Unknown]
  - Gait disturbance [Unknown]
  - Ventricular tachycardia [Unknown]
  - Renal cell carcinoma [Not Recovered/Not Resolved]
  - Basal cell carcinoma [Recovered/Resolved]
  - Chronic kidney disease [Unknown]
  - Loss of consciousness [Unknown]
  - Erythema induratum [Unknown]
  - Erysipelas [Recovering/Resolving]
  - Arrhythmia [Unknown]
  - Renal neoplasm [Recovered/Resolved]
  - Atrial fibrillation [Unknown]
  - Diabetes mellitus [Unknown]
  - Asthenia [Unknown]
  - Erythema [Recovering/Resolving]
  - Blood pressure abnormal [Unknown]
  - Hypothyroidism [Unknown]
  - Confusional state [Unknown]
  - Aphthous ulcer [Unknown]
  - Nocturia [Unknown]
  - Rash [Unknown]
  - Insomnia [Unknown]
  - Abscess [Unknown]
  - Anal incontinence [Not Recovered/Not Resolved]
  - Anal prolapse [Unknown]
  - Ischaemia [Unknown]
  - Productive cough [Unknown]
  - Anaemia [Unknown]
  - Drug intolerance [Unknown]
  - Arthralgia [Recovering/Resolving]
  - Dyspnoea [Unknown]
  - Oedema peripheral [Recovering/Resolving]
  - Ventricular extrasystoles [Unknown]
  - Iron deficiency [Unknown]
  - Blood glucose abnormal [Unknown]
  - Renal cyst [Unknown]
  - Fibroma [Unknown]
  - Dysuria [Recovered/Resolved]
  - Weight increased [Recovering/Resolving]
  - Abdominal distension [Unknown]
  - Tendon rupture [Unknown]
  - Joint swelling [Unknown]
  - Cerumen impaction [Unknown]
  - Varicose vein [Unknown]
  - Gastroenteritis [Unknown]
  - Urinary tract infection [Recovered/Resolved]
  - Pruritus [Unknown]
  - Inflammation [Unknown]
  - Weight decreased [Unknown]
  - Pustule [Unknown]
  - Seborrhoeic keratosis [Unknown]
  - Diarrhoea [Unknown]
  - Dyschezia [Unknown]
  - Tachycardia [Unknown]
  - Urinary incontinence [Not Recovered/Not Resolved]
  - Visual impairment [Unknown]
  - Vomiting [Unknown]
  - Adenoma benign [Recovered/Resolved]
  - Left ventricular hypertrophy [Unknown]
  - Pleural effusion [Recovered/Resolved]
  - Haemorrhoids [Unknown]
  - General physical health deterioration [Recovering/Resolving]
  - Hypersensitivity [Unknown]
  - Dermatosis [Unknown]
  - Meniscus injury [Unknown]
  - Tinnitus [Unknown]
  - Abdominal pain [Unknown]
  - Fatigue [Unknown]
  - Oedema mucosal [Unknown]
  - Functional gastrointestinal disorder [Unknown]
  - Drug ineffective [Unknown]

NARRATIVE: CASE EVENT DATE: 20070101
